FAERS Safety Report 6132223-8 (Version None)
Quarter: 2009Q1

REPORT INFORMATION
  Report Type: 
  Country: None (occurrence: None)
  Receive Date: 20090319
  Receipt Date: 20080423
  Transmission Date: 20090719
  Serious: Yes (Hospitalization)
  Sender: FDA-Public Use
  Company Number: 2008-BP-05670RO

PATIENT
  Age: 49 Year
  Sex: Female
  Weight: 61 kg

DRUGS (35)
  1. ROXICET [Suspect]
     Dosage: (SEE TEXT, 5MG/325MG),-
     Dates: start: 20001109
  2. METHADONE HCL [Suspect]
     Dosage: SEE TEXT (10 MG, 3 IN 1 D) : SEE TEXT (20 MG, 3 IN 1 D) : 10 MG, 4 IN 1 D)
     Dates: start: 20020822, end: 20020903
  3. METHADONE HCL [Suspect]
     Dosage: SEE TEXT (10 MG, 3 IN 1 D) : SEE TEXT (20 MG, 3 IN 1 D) : 10 MG, 4 IN 1 D)
     Dates: start: 20020904, end: 20030609
  4. METHADONE HCL [Suspect]
     Dosage: SEE TEXT (10 MG, 3 IN 1 D) : SEE TEXT (20 MG, 3 IN 1 D) : 10 MG, 4 IN 1 D)
     Dates: start: 20030610, end: 20040907
  5. MORPHINE [Suspect]
     Dosage: 15 MG
     Dates: start: 20041210
  6. ACTIQ [Suspect]
     Indication: ARTHROPATHY
     Dosage: SEE TEXT (SEE TEXT, VARIABLE DOSING), BU
     Route: 002
     Dates: start: 20020506, end: 20070130
  7. ACTIQ [Suspect]
     Indication: BACK PAIN
     Dosage: SEE TEXT (SEE TEXT, VARIABLE DOSING), BU
     Route: 002
     Dates: start: 20020506, end: 20070130
  8. LORCET-HD [Suspect]
     Indication: BACK PAIN
     Dosage: SEE TEXT (SEE TEXT, 10 MG HYDROCODONE/ACETAMINOPHEN PRN)
     Dates: start: 19991027
  9. NORCO [Suspect]
     Indication: BACK PAIN
     Dosage: SEE TEXT (SEE TEXT, 10 MG HYDROCODONE/325 MG ACETAMINOPHEN PRN) : (SEE TEXT, 20MG EVERY 4 HOURS)
     Dates: end: 20020822
  10. NORCO [Suspect]
     Indication: BACK PAIN
     Dosage: SEE TEXT (SEE TEXT, 10 MG HYDROCODONE/325 MG ACETAMINOPHEN PRN) : (SEE TEXT, 20MG EVERY 4 HOURS)
     Dates: start: 20000105
  11. OXYCONTIN [Suspect]
     Indication: BACK PAIN
     Dosage: 140 MG : 100 MG
     Dates: end: 20020822
  12. OXYCONTIN [Suspect]
     Indication: BACK PAIN
     Dosage: 140 MG : 100 MG
     Dates: start: 19991027
  13. ENDOCET (OXYCOCET) [Suspect]
     Dosage: SEE TEXT, 5MG OXYCODONE/325 MG ACETAMINOPHEN
     Dates: start: 20060329
  14. VICODIN ES [Suspect]
     Dosage: SEE TEXT, 5MG HYDROCODONE BITARTRATE/750MG ACETAMINOPHEN
     Dates: start: 20040507
  15. OXYIR (OXYCODONE HYDROCHLORIDE) [Suspect]
     Dosage: SEE TEXT (10 MG, 4 IN 1 D)
     Dates: start: 20020101, end: 20020101
  16. DURAGESIC-100 [Suspect]
     Indication: BACK PAIN
     Dosage: SEE TEXT (75 MCG EVERY HOUR), TD : (150MCG EVERY HOUR), TD : (100MCG EVERY HOUR), TD
     Route: 062
     Dates: start: 20040907, end: 20050224
  17. DURAGESIC-100 [Suspect]
     Indication: BACK PAIN
     Dosage: SEE TEXT (75 MCG EVERY HOUR), TD : (150MCG EVERY HOUR), TD : (100MCG EVERY HOUR), TD
     Route: 062
     Dates: start: 20050225, end: 20050518
  18. DURAGESIC-100 [Suspect]
     Indication: BACK PAIN
     Dosage: SEE TEXT (75 MCG EVERY HOUR), TD : (150MCG EVERY HOUR), TD : (100MCG EVERY HOUR), TD
     Route: 062
     Dates: start: 20050519, end: 20051108
  19. DURAGESIC-100 [Suspect]
     Indication: BACK PAIN
     Dosage: SEE TEXT (75 MCG EVERY HOUR), TD : (150MCG EVERY HOUR), TD : (100MCG EVERY HOUR), TD
     Route: 062
     Dates: start: 20051109, end: 20060130
  20. DURAGESIC-100 [Suspect]
     Indication: BACK PAIN
     Dosage: SEE TEXT (75 MCG EVERY HOUR), TD : (150MCG EVERY HOUR), TD : (100MCG EVERY HOUR), TD
     Route: 062
     Dates: start: 20060131, end: 20070202
  21. DURAGESIC-100 [Suspect]
     Indication: BACK PAIN
     Dosage: SEE TEXT (75 MCG EVERY HOUR), TD : (150MCG EVERY HOUR), TD : (100MCG EVERY HOUR), TD
     Route: 062
     Dates: start: 20070203, end: 20070501
  22. KADIAN [Suspect]
     Dosage: 200 MG (100 MG, 2 IN 1 D)
     Dates: start: 20060828, end: 20070130
  23. STADOL [Suspect]
     Indication: BACK PAIN
     Dosage: (SEE TEXT, 10MG/ML), IN
     Dates: start: 20011109
  24. DILAUDID [Suspect]
     Dosage: 16 MG (4 MG, 4 IN 1 D) : SEE TEXT (4MG TID)
     Dates: start: 20060213, end: 20060918
  25. DILAUDID [Suspect]
     Dosage: 16 MG (4 MG, 4 IN 1 D) : SEE TEXT (4MG TID)
     Dates: start: 20060919, end: 20070131
  26. VALIUM [Concomitant]
  27. ZANAFLEX [Concomitant]
  28. DESYREL [Concomitant]
  29. ATIVAN [Concomitant]
  30. ZOLOFT [Concomitant]
  31. NEURONTIN [Concomitant]
  32. SEROQUEL [Concomitant]
  33. TOPAMAX [Concomitant]
  34. WELLBUTRIN XL [Concomitant]
  35. CAUDAL EPIDURAL STEROID INJECTION (ALL OTHER THERAPEUTIC PRODUCTS) [Concomitant]

REACTIONS (8)
  - ABNORMAL BEHAVIOUR [None]
  - DENTAL CARIES [None]
  - DEPRESSION [None]
  - DRUG ABUSE [None]
  - DRUG DEPENDENCE [None]
  - DYSARTHRIA [None]
  - PARTNER STRESS [None]
  - TOOTH ABSCESS [None]
